FAERS Safety Report 4479062-1 (Version None)
Quarter: 2004Q4

REPORT INFORMATION
  Report Type: 
  Country: None (occurrence: None)
  Receive Date: 20041015
  Receipt Date: 20041001
  Transmission Date: 20050328
  Serious: Yes (Death, Other)
  Sender: FDA-Public Use
  Company Number: 2004227108IT

PATIENT
  Age: 78 Year

DRUGS (4)
  1. ETOPOSIDE [Suspect]
     Indication: ADULT T-CELL LYMPHOMA/LEUKAEMIA
     Dosage: CYCLIC, ORAL
     Route: 048
     Dates: start: 20001009
  2. CYCLOPHOSPHAMIDE [Suspect]
     Indication: ADULT T-CELL LYMPHOMA/LEUKAEMIA
     Dosage: CYCLIC, ORAL
     Route: 048
     Dates: start: 20001009
  3. IDARUBICIN HCL [Suspect]
     Indication: ADULT T-CELL LYMPHOMA/LEUKAEMIA
     Dosage: CYCLIC, ORAL
     Route: 048
     Dates: start: 20001009
  4. DELTASONE [Suspect]
     Indication: ADULT T-CELL LYMPHOMA/LEUKAEMIA
     Dosage: CYCLIC, ORAL
     Route: 048
     Dates: start: 20001009

REACTIONS (2)
  - HAEMORRHAGE [None]
  - VENTRICULAR FIBRILLATION [None]
